FAERS Safety Report 11982793 (Version 2)
Quarter: 2016Q1

REPORT INFORMATION
  Report Type: Spontaneous
  Country: US (occurrence: US)
  Receive Date: 20160201
  Receipt Date: 20160212
  Transmission Date: 20160526
  Serious: Yes (Other)
  Sender: FDA-Public Use
  Company Number: US-SHIRE-US201600666

PATIENT
  Age: 53 Year
  Sex: Female
  Weight: 52.15 kg

DRUGS (1)
  1. GATTEX [Suspect]
     Active Substance: TEDUGLUTIDE\WATER
     Indication: SHORT-BOWEL SYNDROME
     Dosage: 0.3 ML, 1X/DAY:QD
     Route: 058
     Dates: start: 20160114

REACTIONS (5)
  - Intestinal obstruction [Recovered/Resolved]
  - Abdominal distension [Recovered/Resolved]
  - Fluid retention [Unknown]
  - Fatigue [Unknown]
  - Stoma site inflammation [Unknown]

NARRATIVE: CASE EVENT DATE: 201601
